FAERS Safety Report 19554952 (Version 2)
Quarter: 2021Q3

REPORT INFORMATION
  Report Type: Other
  Country: JP (occurrence: JP)
  Receive Date: 20210715
  Receipt Date: 20210726
  Transmission Date: 20211014
  Serious: Yes (Hospitalization)
  Sender: FDA-Public Use
  Company Number: JP-ROCHE-2870540

PATIENT
  Age: 66 Year
  Sex: Male

DRUGS (9)
  1. TOCILIZUMAB. [Suspect]
     Active Substance: TOCILIZUMAB
     Indication: GIANT CELL ARTERITIS
     Route: 058
  2. COLCHICINE. [Suspect]
     Active Substance: COLCHICINE
     Indication: ACQUIRED GENE MUTATION
     Route: 065
  3. PREDNISOLONE. [Suspect]
     Active Substance: PREDNISOLONE
     Indication: POLYCHONDRITIS
     Route: 065
  4. COLCHICINE. [Suspect]
     Active Substance: COLCHICINE
     Indication: POLYCHONDRITIS
  5. TOCILIZUMAB. [Suspect]
     Active Substance: TOCILIZUMAB
     Indication: GIANT CELL ARTERITIS
     Route: 042
  6. PREDNISOLONE. [Suspect]
     Active Substance: PREDNISOLONE
     Route: 065
  7. PREDNISOLONE. [Suspect]
     Active Substance: PREDNISOLONE
     Route: 065
  8. PREDNISOLONE. [Suspect]
     Active Substance: PREDNISOLONE
     Indication: ACQUIRED GENE MUTATION
     Route: 065
  9. PREDNISOLONE. [Suspect]
     Active Substance: PREDNISOLONE
     Route: 065

REACTIONS (3)
  - Treatment failure [Unknown]
  - Drug eruption [Unknown]
  - Herpes zoster [Recovered/Resolved]
